FAERS Safety Report 19309328 (Version 2)
Quarter: 2021Q3

REPORT INFORMATION
  Report Type: Other
  Country: US (occurrence: US)
  Receive Date: 20210526
  Receipt Date: 20210929
  Transmission Date: 20211014
  Serious: Yes (Hospitalization, Other)
  Sender: FDA-Public Use
  Company Number: US-ROCHE-2711034

PATIENT
  Sex: Female
  Weight: 126.21 kg

DRUGS (20)
  1. XOLAIR [Suspect]
     Active Substance: OMALIZUMAB
     Indication: ASTHMA
     Dosage: ONGOING: YES?MOST RECENT DOSE WAS RECEIVED ON 14/MAY/2021.
     Route: 058
  2. XOLAIR [Suspect]
     Active Substance: OMALIZUMAB
  3. ARNUITY ELLIPTA [Concomitant]
     Active Substance: FLUTICASONE FUROATE
     Dosage: INHALE 1 PUFF BY MOUTH DAILY
     Route: 048
  4. MONTELUKAST [Concomitant]
     Active Substance: MONTELUKAST SODIUM
     Indication: RHINITIS ALLERGIC
     Route: 048
  5. VENTOLIN HFA [Concomitant]
     Active Substance: ALBUTEROL SULFATE
     Dosage: 1 OR 2 PUFFS QID PRN
  6. IPRATROPIUM/ALBUTEROL [Concomitant]
     Active Substance: ALBUTEROL\IPRATROPIUM
     Dosage: 1 VIAL FOUR TIMES DAILY
  7. REMDESIVIR. [Concomitant]
     Active Substance: REMDESIVIR
  8. ACTEMRA [Suspect]
     Active Substance: TOCILIZUMAB
     Indication: COVID-19 PNEUMONIA
     Route: 065
  9. ASTEPRO [Concomitant]
     Active Substance: AZELASTINE HYDROCHLORIDE
     Dosage: 1 PUFF EACH NOSTRIL DAILY
     Route: 045
  10. XOLAIR [Suspect]
     Active Substance: OMALIZUMAB
     Indication: HYPERSENSITIVITY
     Dosage: ONGOING?NO
     Route: 058
  11. XOLAIR [Suspect]
     Active Substance: OMALIZUMAB
     Dosage: ONGOING?NO,?FORM OF ADMIN. TEXT: 150 MG AND 75 MG PFS
     Route: 058
  12. XOLAIR [Suspect]
     Active Substance: OMALIZUMAB
  13. ASTEPRO [Concomitant]
     Active Substance: AZELASTINE HYDROCHLORIDE
     Indication: RHINITIS ALLERGIC
  14. BIOTIN [Concomitant]
     Active Substance: BIOTIN
  15. ANORO ELLIPTA [Concomitant]
     Active Substance: UMECLIDINIUM BROMIDE\VILANTEROL TRIFENATATE
     Indication: HYPERSENSITIVITY
     Dosage: 5?25 MCG, 1 PUFF BY MOUTH DAILY
     Route: 048
  16. ALBUTEROL SULFATE. [Concomitant]
     Active Substance: ALBUTEROL SULFATE
     Dosage: PUFFS QD PRN
  17. VITAMIN C [Concomitant]
     Active Substance: ASCORBIC ACID
  18. XOLAIR [Suspect]
     Active Substance: OMALIZUMAB
  19. FLONASE [Concomitant]
     Active Substance: FLUTICASONE PROPIONATE
     Indication: RHINITIS ALLERGIC
  20. BUDESONIDE. [Concomitant]
     Active Substance: BUDESONIDE
     Indication: ASTHMA
     Dosage: 1 VIAL VIA NEBULIZER FOUR TIMES DAILY

REACTIONS (13)
  - Respiratory disorder [Unknown]
  - Gastric ulcer [Unknown]
  - Off label use [Unknown]
  - COVID-19 pneumonia [Unknown]
  - Hypertension [Unknown]
  - Sleep apnoea syndrome [Unknown]
  - Pyrexia [Unknown]
  - Obesity [Unknown]
  - Acute respiratory failure [Unknown]
  - Appendicitis perforated [Recovering/Resolving]
  - Gastrooesophageal reflux disease [Unknown]
  - Bronchospasm [Unknown]
  - Cough [Unknown]
